FAERS Safety Report 7420353-X (Version None)
Quarter: 2011Q2

REPORT INFORMATION
  Report Type: 
  Country: None (occurrence: None)
  Receive Date: 20110418
  Receipt Date: 20110407
  Transmission Date: 20111010
  Serious: Yes (Hospitalization)
  Sender: FDA-Public Use
  Company Number: US-JNJFOC-20110403840

PATIENT
  Sex: Female
  Weight: 83.92 kg

DRUGS (3)
  1. OMEPRAZOLE EG [Concomitant]
     Route: 048
  2. TOPAMAX [Suspect]
     Indication: MIGRAINE PROPHYLAXIS
     Route: 048
  3. LEXAPRO [Concomitant]
     Route: 048

REACTIONS (2)
  - HOSPITALISATION [None]
  - DRUG EXPOSURE DURING PREGNANCY [None]
